FAERS Safety Report 11198721 (Version 2)
Quarter: 2015Q2

REPORT INFORMATION
  Report Type: Report from Study
  Country: CZ (occurrence: CZ)
  Receive Date: 20150618
  Receipt Date: 20150629
  Transmission Date: 20150821
  Serious: Yes (Hospitalization, Other)
  Sender: FDA-Public Use
  Company Number: CZ-BAYER-2015-324317

PATIENT
  Age: 25 Year
  Sex: Female
  Weight: 60 kg

DRUGS (1)
  1. JAYDESS [Suspect]
     Active Substance: LEVONORGESTREL
     Indication: CONTRACEPTION
     Dosage: 14 MCG/24HR, CONT
     Route: 015
     Dates: start: 20140912, end: 20150417

REACTIONS (10)
  - Pregnancy with contraceptive device [Recovered/Resolved]
  - Abortion incomplete [Recovered/Resolved]
  - Drug ineffective [None]
  - Genital haemorrhage [None]
  - Genital haemorrhage [None]
  - Vaginal haemorrhage [None]
  - Device expulsion [Recovered/Resolved]
  - Menstruation irregular [None]
  - Abdominal pain lower [None]
  - Metrorrhagia [Recovered/Resolved]

NARRATIVE: CASE EVENT DATE: 20150415
